FAERS Safety Report 7603258-0 (Version None)
Quarter: 2011Q2

REPORT INFORMATION
  Report Type: 
  Country: None (occurrence: None)
  Receive Date: 20110630
  Receipt Date: 20110616
  Transmission Date: 20111010
  Serious: Yes (Death)
  Sender: FDA-Public Use
  Company Number: KR-JNJFOC-20110607529

PATIENT
  Age: 53 Year
  Sex: Male
  Weight: 76.2 kg

DRUGS (7)
  1. KCL (POTASSIUM CHLORIDE) POWDER [Concomitant]
  2. DACOGEN [Suspect]
     Indication: MYELODYSPLASTIC SYNDROME
     Dosage: 20 MG/M2, 1 IN 1 DAY, INTRAVENOUS
     Route: 042
     Dates: start: 20110613
  3. DACOGEN [Suspect]
     Indication: MYELODYSPLASTIC SYNDROME
     Dosage: 20 MG/M2, 1 IN 1 DAY, INTRAVENOUS
     Route: 042
     Dates: start: 20110516, end: 20110520
  4. TRAMADOL-ER (TRAMADOL HYDROCHLORIDE) SUSTAINED RELEASE TABLETS [Concomitant]
  5. HEXOMEDINE (HEXOMEDINE /01587901/) SOLUTION [Concomitant]
  6. CHLORPHENIRAMINE (CHLORPHENAMINE) INJECTION [Concomitant]
  7. TRAMADOL (TRAMADOL HYDROCHLORIDE) SUSTAINED RELEASE TABLETS [Concomitant]

REACTIONS (3)
  - DYSPNOEA [None]
  - CACHEXIA [None]
  - COLD SWEAT [None]
